FAERS Safety Report 18432539 (Version 2)
Quarter: 2020Q4

REPORT INFORMATION
  Report Type: Report from Study
  Country: CL (occurrence: CL)
  Receive Date: 20201027
  Receipt Date: 20201104
  Transmission Date: 20210114
  Serious: Yes (Hospitalization, Congenital Anomaly, Other)
  Sender: FDA-Public Use
  Company Number: CL-EMD SERONO-9181523

PATIENT
  Age: 42 Year
  Sex: Female

DRUGS (10)
  1. REBIF [Suspect]
     Active Substance: INTERFERON BETA-1A
     Indication: MULTIPLE SCLEROSIS
     Route: 058
     Dates: start: 20170420, end: 2020
  2. SPIRONOLACTONE. [Concomitant]
     Active Substance: SPIRONOLACTONE
     Indication: PRODUCT USED FOR UNKNOWN INDICATION
  3. ACETYLSALICYLIC ACID [Concomitant]
     Active Substance: ASPIRIN
     Indication: PRODUCT USED FOR UNKNOWN INDICATION
  4. ATORVASTATIN [Concomitant]
     Active Substance: ATORVASTATIN
     Indication: PRODUCT USED FOR UNKNOWN INDICATION
  5. FUROSEMIDE. [Concomitant]
     Active Substance: FUROSEMIDE
     Indication: PRODUCT USED FOR UNKNOWN INDICATION
  6. ATENOLOL. [Concomitant]
     Active Substance: ATENOLOL
     Indication: PRODUCT USED FOR UNKNOWN INDICATION
     Dosage: HALF
  7. CARVEDILOL. [Concomitant]
     Active Substance: CARVEDILOL
     Indication: PRODUCT USED FOR UNKNOWN INDICATION
  8. SILDENAFIL. [Concomitant]
     Active Substance: SILDENAFIL
     Indication: PRODUCT USED FOR UNKNOWN INDICATION
  9. MELATONIN [Concomitant]
     Active Substance: MELATONIN
     Indication: PRODUCT USED FOR UNKNOWN INDICATION
  10. ACENOCOUMAROL [Concomitant]
     Active Substance: ACENOCOUMAROL
     Indication: PRODUCT USED FOR UNKNOWN INDICATION

REACTIONS (16)
  - Urinary tract infection [Unknown]
  - Aortic thrombosis [Unknown]
  - Polyp [Unknown]
  - Dural arteriovenous fistula [Not Recovered/Not Resolved]
  - Myelopathy [Unknown]
  - Ischaemic stroke [Unknown]
  - Pulmonary hypertension [Unknown]
  - Aortic aneurysm [Unknown]
  - Appendicectomy [Unknown]
  - Pulmonary valve incompetence [Not Recovered/Not Resolved]
  - Intestinal polyp [Unknown]
  - Cardiac failure [Unknown]
  - Renal artery thrombosis [Unknown]
  - Off label use [Unknown]
  - Atrial septal defect [Unknown]
  - Paradoxical embolism [Unknown]

NARRATIVE: CASE EVENT DATE: 2017
